FAERS Safety Report 25035608 (Version 3)
Quarter: 2025Q1

REPORT INFORMATION
  Report Type: Spontaneous
  Country: CA (occurrence: None)
  Receive Date: 20250304
  Receipt Date: 20250331
  Transmission Date: 20250409
  Serious: Yes (Other)
  Sender: ORION
  Company Number: CA-PFIZER INC-202500043545

PATIENT
  Age: 48 Year
  Sex: Female

DRUGS (12)
  1. METHOTREXATE [Suspect]
     Active Substance: METHOTREXATE
     Indication: Rheumatoid arthritis
     Dates: start: 2010, end: 202411
  2. METHOTREXATE [Suspect]
     Active Substance: METHOTREXATE
     Dates: start: 201707
  3. ACTEMRA [Concomitant]
     Active Substance: TOCILIZUMAB
     Dates: start: 202407, end: 20250127
  4. ARAVA [Concomitant]
     Active Substance: LEFLUNOMIDE
     Dates: start: 2012, end: 2014
  5. PREDNISONE [Concomitant]
     Active Substance: PREDNISONE
     Dates: start: 2021, end: 2022
  6. PREDNISONE [Concomitant]
     Active Substance: PREDNISONE
     Dates: start: 202403
  7. SULFASALAZINE [Concomitant]
     Active Substance: SULFASALAZINE
     Dates: start: 2012, end: 2014
  8. SULFASALAZINE [Concomitant]
     Active Substance: SULFASALAZINE
     Dates: start: 201106, end: 201211
  9. PLAQUENIL [Concomitant]
     Active Substance: HYDROXYCHLOROQUINE SULFATE
     Dates: start: 2014, end: 2017
  10. XELJANZ [Concomitant]
     Active Substance: TOFACITINIB CITRATE
     Dates: start: 2018, end: 202211
  11. RINVOQ [Concomitant]
     Active Substance: UPADACITINIB
     Dates: start: 202211, end: 202303
  12. SIMPONI [Concomitant]
     Active Substance: GOLIMUMAB
     Dates: start: 202306, end: 202406

REACTIONS (3)
  - Knee arthroplasty [Unknown]
  - Treatment failure [Unknown]
  - Liver disorder [Unknown]

NARRATIVE: CASE EVENT DATE: 20230101
